FAERS Safety Report 11984395 (Version 1)
Quarter: 2016Q1

REPORT INFORMATION
  Report Type: Spontaneous
  Country: CA (occurrence: US)
  Receive Date: 20160201
  Receipt Date: 20160201
  Transmission Date: 20160526
  Serious: No
  Sender: FDA-Public Use
  Company Number: US-KADMON PHARMACEUTICALS, LLC-KAD201506-001926

PATIENT
  Age: 68 Year
  Sex: Male
  Weight: 63.5 kg

DRUGS (3)
  1. HARVONI [Suspect]
     Active Substance: LEDIPASVIR\SOFOSBUVIR
     Indication: HEPATITIS C
     Dates: start: 20150415
  2. RIBASPHERE [Suspect]
     Active Substance: RIBAVIRIN
     Indication: HEPATITIS C
     Dosage: TABLET
     Route: 048
     Dates: start: 20150415
  3. REMERON [Concomitant]
     Active Substance: MIRTAZAPINE
     Indication: SOMNOLENCE

REACTIONS (1)
  - Herpes zoster [Not Recovered/Not Resolved]
